FAERS Safety Report 15065863 (Version 2)
Quarter: 2020Q1

REPORT INFORMATION
  Report Type: Report from Study
  Country: ES (occurrence: ES)
  Receive Date: 20180626
  Receipt Date: 20200210
  Transmission Date: 20200409
  Serious: No
  Sender: FDA-Public Use
  Company Number: ES-ROCHE-2143994

PATIENT
  Age: 59 Year
  Sex: Male
  Weight: 85.3 kg

DRUGS (8)
  1. RO6874281 (FAP IL2V MAB) [Suspect]
     Active Substance: SIMLUKAFUSP ALFA
     Indication: RENAL CELL CARCINOMA
     Dosage: MOST RECENT DOSE 5MG PRIOR TO THE AE ONSET RECEIVED ON 19/JUN/2018
     Route: 042
     Dates: start: 20171107
  2. BEVACIZUMAB. [Suspect]
     Active Substance: BEVACIZUMAB
     Dosage: DATE OF MOST RECENT DOSE: 25/SEP/2018
     Route: 042
     Dates: start: 20171205
  3. AMLODIPINO [AMLODIPINE] [Concomitant]
     Route: 065
  4. BEVACIZUMAB. [Suspect]
     Active Substance: BEVACIZUMAB
     Indication: RENAL CELL CARCINOMA
     Dosage: MOST RECENT DOSE 10 MG/KG PRIOR TO THE AE ONSET RECEIVED ON 19/JUN/2018
     Route: 042
     Dates: start: 20171107
  5. ESOMEPRAZOLE. [Concomitant]
     Active Substance: ESOMEPRAZOLE MAGNESIUM
     Route: 065
  6. ENALAPRIL [Concomitant]
     Active Substance: ENALAPRIL
     Route: 065
  7. DOXAZOSINA [DOXAZOSIN] [Concomitant]
     Route: 065
  8. ATEZOLIZUMAB. [Suspect]
     Active Substance: ATEZOLIZUMAB
     Indication: RENAL CELL CARCINOMA
     Dosage: MOST RECENT DOSE 840 MG PRIOR TO THE AE ONSET RECEIVED ON 19/JUN/2018
     Route: 042
     Dates: start: 20171107

REACTIONS (2)
  - Proteinuria [Recovering/Resolving]
  - Atrial fibrillation [Recovered/Resolved]

NARRATIVE: CASE EVENT DATE: 20180620
